FAERS Safety Report 8394982-3 (Version None)
Quarter: 2012Q2

REPORT INFORMATION
  Report Type: 
  Country: None (occurrence: None)
  Receive Date: 20120530
  Receipt Date: 20120325
  Transmission Date: 20120825
  Serious: No
  Sender: FDA-Public Use
  Company Number: US-GLAXOSMITHKLINE-A0971581A

PATIENT
  Age: 28 Year
  Sex: Female

DRUGS (4)
  1. COUMADIN [Concomitant]
     Dosage: 10MG AS DIRECTED
  2. REVATIO [Concomitant]
     Dosage: 10MG THREE TIMES PER DAY
  3. FLOLAN [Suspect]
     Indication: COR PULMONALE CHRONIC
     Dosage: 19NGKM UNKNOWN
     Route: 042
     Dates: start: 20070831
  4. ANTIBIOTICS [Suspect]
     Indication: INFECTION
     Route: 042

REACTIONS (5)
  - MALAISE [None]
  - FATIGUE [None]
  - ADVERSE DRUG REACTION [None]
  - INFECTION [None]
  - CATHETER SITE DISCHARGE [None]
